FAERS Safety Report 4673252-0 (Version None)
Quarter: 2005Q2

REPORT INFORMATION
  Report Type: 
  Country: None (occurrence: None)
  Receive Date: 20050525
  Receipt Date: 20050518
  Transmission Date: 20051028
  Serious: Yes (Other)
  Sender: FDA-Public Use
  Company Number: 200514481GDDC

PATIENT
  Age: 61 Year
  Sex: Male
  Weight: 65 kg

DRUGS (2)
  1. RAMIPRIL [Suspect]
     Indication: MYOCARDIAL ISCHAEMIA
     Route: 048
  2. FRUSEMIDE [Suspect]
     Indication: ESSENTIAL HYPERTENSION
     Dates: end: 20040513

REACTIONS (1)
  - RENAL FAILURE ACUTE [None]
